FAERS Safety Report 5504272-1 (Version None)
Quarter: 2007Q4

REPORT INFORMATION
  Report Type: 
  Country: None (occurrence: None)
  Receive Date: 20071101
  Receipt Date: 20071024
  Transmission Date: 20080405
  Serious: Yes (Life-Threatening, Hospitalization, Other)
  Sender: FDA-Public Use
  Company Number: US-PURDUE-USA_2007_0027508

PATIENT
  Sex: Male

DRUGS (1)
  1. OXYCONTIN [Suspect]
     Indication: DRUG USE FOR UNKNOWN INDICATION
     Dosage: 40 MG, SEE TEXT
     Route: 048
     Dates: end: 20070501

REACTIONS (5)
  - DRUG DEPENDENCE [None]
  - HOSPITALISATION [None]
  - NIGHTMARE [None]
  - TOOTH DISORDER [None]
  - UNEVALUABLE EVENT [None]
